FAERS Safety Report 17800532 (Version 1)
Quarter: 2020Q2

REPORT INFORMATION
  Report Type: Spontaneous
  Country: NL (occurrence: DE)
  Receive Date: 20200518
  Receipt Date: 20200518
  Transmission Date: 20200714
  Serious: Yes (Other)
  Sender: FDA-Public Use
  Company Number: DE-FRESENIUS KABI-FK202004716

PATIENT
  Age: 75 Year
  Sex: Male
  Weight: 71 kg

DRUGS (5)
  1. SODIUM LACTATE/POTASSIUM CHLORIDE/SODIUM CHLORIDE/MAGNESIUM CHLORIDE HEXAHYDRATE/CALCIUM CHLORIDE DI [Suspect]
     Active Substance: CALCIUM CHLORIDE\MAGNESIUM CHLORIDE\POTASSIUM CHLORIDE\SODIUM ACETATE\SODIUM CHLORIDE
     Dosage: IN KCL
     Dates: start: 20200421
  2. POTASSIUM CHLORIDE (MANUFACTURER UNKNOWN) [Suspect]
     Active Substance: POTASSIUM CHLORIDE
     Indication: PRODUCT USED FOR UNKNOWN INDICATION
     Dosage: 20 ML
     Route: 065
     Dates: start: 20200421
  3. SODIUM LACTATE/POTASSIUM CHLORIDE/SODIUM CHLORIDE/MAGNESIUM CHLORIDE HEXAHYDRATE/CALCIUM CHLORIDE DI [Suspect]
     Active Substance: CALCIUM CHLORIDE\MAGNESIUM CHLORIDE\POTASSIUM CHLORIDE\SODIUM ACETATE\SODIUM CHLORIDE
     Indication: PRODUCT USED FOR UNKNOWN INDICATION
     Dosage: 3000 ML DAILY
     Route: 065
  4. OLIMEL E [Suspect]
     Active Substance: AMINO ACIDS\DEXTROSE\ELECTROLYTES NOS\SOYBEAN OIL
     Indication: PARENTERAL NUTRITION
     Dosage: 650 ML DAILY
     Route: 065
     Dates: start: 20200417, end: 20200419
  5. GLUCOSE/GLYCINE/ALANINE/SERINE/ASPARTIC ACID/LYSINE/LEUCINE/METHIONINE/PHENYLALANINE/ACETIC ACID/HIS [NUTRIFLEX] [Suspect]
     Active Substance: AMINO ACIDS\CARBOHYDRATES\ELECTROLYTES NOS
     Indication: PRODUCT USED FOR UNKNOWN INDICATION
     Dosage: UNK
     Route: 065

REACTIONS (10)
  - Platelet count decreased [Unknown]
  - Reticulocyte count increased [Unknown]
  - Red blood cell count decreased [Unknown]
  - Pyrexia [Unknown]
  - Blood phosphorus decreased [Unknown]
  - Blood magnesium decreased [Unknown]
  - Blood potassium decreased [Unknown]
  - Haemoglobin decreased [Unknown]
  - Blood calcium decreased [Unknown]
  - Haematocrit decreased [Unknown]

NARRATIVE: CASE EVENT DATE: 202004
